FAERS Safety Report 4696497-2 (Version None)
Quarter: 2005Q2

REPORT INFORMATION
  Report Type: 
  Country: None (occurrence: None)
  Receive Date: 20050621
  Receipt Date: 20050613
  Transmission Date: 20051028
  Serious: Yes (Hospitalization)
  Sender: FDA-Public Use
  Company Number: NO-MERCK-0506NOR00017

PATIENT
  Age: 72 Year
  Sex: Male

DRUGS (4)
  1. VIOXX [Suspect]
     Indication: ANKYLOSING SPONDYLITIS
     Route: 048
     Dates: start: 19970101, end: 20040901
  2. ASPIRIN AND MAGNESIUM OXIDE [Concomitant]
     Route: 065
  3. LEVOTHYROXINE SODIUM [Concomitant]
     Indication: HYPOTHYROIDISM
     Route: 065
  4. ZUCLOPENTHIXOL HYDROCHLORIDE [Concomitant]
     Indication: PARANOIA
     Route: 065

REACTIONS (5)
  - ATRIAL FIBRILLATION [None]
  - CEREBRAL INFARCTION [None]
  - CHEST PAIN [None]
  - HEADACHE [None]
  - NERVOUSNESS [None]
